FAERS Safety Report 13257453 (Version 2)
Quarter: 2020Q3

REPORT INFORMATION
  Report Type: Report from Study
  Country: US (occurrence: US)
  Receive Date: 20170221
  Receipt Date: 20170602
  Transmission Date: 20201104
  Serious: Yes (Death, Life-Threatening, Hospitalization, Disabling)
  Sender: FDA-Public Use
  Company Number: US-US WORLDMEDS, LLC-USW201702-000233

PATIENT
  Age: 60 Year
  Sex: Male
  Weight: 81.6 kg

DRUGS (12)
  1. APOMORPHINE HYDROCHLORIDE [Suspect]
     Active Substance: APOMORPHINE HYDROCHLORIDE
     Indication: PARKINSON^S DISEASE
     Route: 058
     Dates: start: 20160805, end: 20160805
  2. APOMORPHINE HYDROCHLORIDE [Suspect]
     Active Substance: APOMORPHINE HYDROCHLORIDE
     Route: 058
     Dates: start: 20160809, end: 20160809
  3. ROPINIROLE. [Concomitant]
     Active Substance: ROPINIROLE
  4. APOMORPHINE HYDROCHLORIDE [Suspect]
     Active Substance: APOMORPHINE HYDROCHLORIDE
     Route: 058
     Dates: start: 20160818, end: 20161020
  5. ENTACAPONE. [Concomitant]
     Active Substance: ENTACAPONE
  6. AMANTADINE. [Concomitant]
     Active Substance: AMANTADINE HYDROCHLORIDE
  7. GABAPENTIN. [Concomitant]
     Active Substance: GABAPENTIN
  8. APOMORPHINE HYDROCHLORIDE [Suspect]
     Active Substance: APOMORPHINE HYDROCHLORIDE
     Route: 058
     Dates: start: 20160816, end: 20160816
  9. APOMORPHINE HYDROCHLORIDE [Suspect]
     Active Substance: APOMORPHINE HYDROCHLORIDE
     Route: 058
     Dates: start: 20161206, end: 20170119
  10. SELEGILINE [Concomitant]
     Active Substance: SELEGILINE
  11. APOMORPHINE HYDROCHLORIDE [Suspect]
     Active Substance: APOMORPHINE HYDROCHLORIDE
     Route: 058
     Dates: start: 20160811, end: 20160811
  12. SINEMET [Concomitant]
     Active Substance: CARBIDOPA\LEVODOPA
     Indication: PARKINSON^S DISEASE

REACTIONS (10)
  - Death [Fatal]
  - Subdural haemorrhage [Unknown]
  - Pneumothorax [Unknown]
  - Cerebral haemorrhage [Unknown]
  - Road traffic accident [Fatal]
  - Skull fractured base [Unknown]
  - Splenic rupture [Unknown]
  - Haemothorax [Unknown]
  - Subarachnoid haemorrhage [Unknown]
  - Open fracture [Unknown]

NARRATIVE: CASE EVENT DATE: 20170119
